FAERS Safety Report 17346995 (Version 1)
Quarter: 2020Q1

REPORT INFORMATION
  Report Type: Spontaneous
  Country: US (occurrence: US)
  Receive Date: 20200129
  Receipt Date: 20200129
  Transmission Date: 20200409
  Serious: No
  Sender: FDA-Public Use
  Company Number: None

PATIENT
  Age: 43 Year
  Sex: Female
  Weight: 112.8 kg

DRUGS (17)
  1. PROCHLORPERAZINE. [Concomitant]
     Active Substance: PROCHLORPERAZINE
  2. VITAMIN D3 [Concomitant]
     Active Substance: CHOLECALCIFEROL
  3. ESOMEPRAZOLE DR [Concomitant]
     Active Substance: ESOMEPRAZOLE
  4. FAMOTIDINE. [Concomitant]
     Active Substance: FAMOTIDINE
  5. HYDROXYCHLOR [Concomitant]
     Active Substance: HYDROXYCHLOROQUINE
  6. MECLIZINE [Concomitant]
     Active Substance: MECLIZINE HYDROCHLORIDE
  7. FISH OIL [Concomitant]
     Active Substance: FISH OIL
  8. FOLIC ACID. [Concomitant]
     Active Substance: FOLIC ACID
  9. PREDNISONE. [Concomitant]
     Active Substance: PREDNISONE
  10. EMGALITY [Suspect]
     Active Substance: GALCANEZUMAB-GNLM
     Indication: MIGRAINE
     Dosage: ?          OTHER FREQUENCY:INJECTION EVERY 28;?
     Route: 058
     Dates: start: 20191031, end: 20200124
  11. CYCLOBENZAPRINE. [Concomitant]
     Active Substance: CYCLOBENZAPRINE
  12. TRAMADOL. [Concomitant]
     Active Substance: TRAMADOL
  13. METHOTREXATE. [Concomitant]
     Active Substance: METHOTREXATE
  14. MULTI VITAMIN [Concomitant]
     Active Substance: VITAMINS
  15. CALCIUM W/VITAMIN D [Concomitant]
     Active Substance: CALCIUM\VITAMIN D
  16. RIZATRIPTAN. [Concomitant]
     Active Substance: RIZATRIPTAN
  17. PROBIOTICS [Concomitant]
     Active Substance: PROBIOTICS NOS

REACTIONS (8)
  - Arthralgia [None]
  - Abdominal distension [None]
  - Gastrointestinal pain [None]
  - Mood swings [None]
  - Flatulence [None]
  - Dyspepsia [None]
  - Anger [None]
  - Depressed mood [None]

NARRATIVE: CASE EVENT DATE: 20191031
